FAERS Safety Report 4924322-0 (Version None)
Quarter: 2006Q1

REPORT INFORMATION
  Report Type: 
  Country: None (occurrence: None)
  Receive Date: 20060227
  Receipt Date: 20060111
  Transmission Date: 20060701
  Serious: No
  Sender: FDA-Public Use
  Company Number: US-GLAXOSMITHKLINE-A0588812A

PATIENT
  Age: 43 Year
  Sex: Female

DRUGS (2)
  1. WELLBUTRIN XL [Suspect]
     Dosage: 300MG PER DAY
     Route: 048
  2. ZELNORM [Concomitant]

REACTIONS (8)
  - DYSPHAGIA [None]
  - INSOMNIA [None]
  - LYMPH NODE PAIN [None]
  - LYMPHADENOPATHY [None]
  - NECK PAIN [None]
  - PYREXIA [None]
  - SWOLLEN TONGUE [None]
  - URTICARIA [None]
